FAERS Safety Report 21126194 (Version 1)
Quarter: 2022Q3

REPORT INFORMATION
  Report Type: Spontaneous
  Country: AU (occurrence: AU)
  Receive Date: 20220725
  Receipt Date: 20220725
  Transmission Date: 20221027
  Serious: Yes (Other)
  Sender: FDA-Public Use
  Company Number: AU-INSUD PHARMA-2207AU02859

PATIENT

DRUGS (2)
  1. VIENVA TM [Suspect]
     Active Substance: ETHINYL ESTRADIOL\LEVONORGESTREL
     Indication: Oral contraception
     Dosage: UNKNOWN
     Route: 048
  2. PFIZER-BIONTECH COVID-19 VACCINE [Suspect]
     Active Substance: TOZINAMERAN
     Indication: Antiviral prophylaxis
     Dosage: FIRST DOSE
     Route: 065

REACTIONS (6)
  - Acute macular neuroretinopathy [Recovering/Resolving]
  - Retinal disorder [Recovering/Resolving]
  - Visual field defect [Recovering/Resolving]
  - Headache [Recovered/Resolved]
  - Myalgia [Recovered/Resolved]
  - Chills [Recovered/Resolved]
